FAERS Safety Report 9437540 (Version 2)
Quarter: 2013Q3

REPORT INFORMATION
  Report Type: Report from Study
  Country: BR (occurrence: BR)
  Receive Date: 20130802
  Receipt Date: 20130805
  Transmission Date: 20140515
  Serious: Yes (Other)
  Sender: FDA-Public Use
  Company Number: BR-ABBOTT-13P-020-1128737-00

PATIENT
  Age: 18 Year
  Sex: Female
  Weight: 52 kg

DRUGS (2)
  1. HUMIRA [Suspect]
     Indication: PSORIASIS
     Dosage: WEEK 0
     Route: 058
     Dates: start: 20120912, end: 20120912
  2. HUMIRA [Suspect]
     Dosage: WEEK 1
     Route: 058
     Dates: start: 20130713

REACTIONS (1)
  - Abortion spontaneous [Unknown]
